FAERS Safety Report 18636502 (Version 1)
Quarter: 2020Q4

REPORT INFORMATION
  Report Type: Spontaneous
  Country: CN (occurrence: CN)
  Receive Date: 20201218
  Receipt Date: 20201218
  Transmission Date: 20210114
  Serious: Yes (Other)
  Sender: FDA-Public Use
  Company Number: CN-ASTRAZENECA-2020SF70014

PATIENT
  Age: 31412 Day
  Sex: Female
  Weight: 49 kg

DRUGS (2)
  1. PULMICORT RESPULES [Suspect]
     Active Substance: BUDESONIDE
     Indication: BRONCHITIS CHRONIC
     Route: 055
     Dates: start: 20201126, end: 20201127
  2. FLUIMUCIL [Suspect]
     Active Substance: ACETYLCYSTEINE
     Indication: BRONCHITIS CHRONIC
     Route: 055
     Dates: start: 20201126, end: 20201127

REACTIONS (2)
  - Chills [Recovered/Resolved]
  - Cryophobia [Recovered/Resolved]

NARRATIVE: CASE EVENT DATE: 20201127
